FAERS Safety Report 5482357-6 (Version None)
Quarter: 2007Q4

REPORT INFORMATION
  Report Type: 
  Country: None (occurrence: None)
  Receive Date: 20071011
  Receipt Date: 20071005
  Transmission Date: 20080405
  Serious: Yes (Other)
  Sender: FDA-Public Use
  Company Number: A0686356A

PATIENT

DRUGS (1)
  1. VALTREX [Suspect]
     Indication: GENITAL HERPES

REACTIONS (2)
  - DEAFNESS [None]
  - DRUG EXPOSURE DURING PREGNANCY [None]
